FAERS Safety Report 5343805-5 (Version None)
Quarter: 2007Q2

REPORT INFORMATION
  Report Type: 
  Country: None (occurrence: None)
  Receive Date: 20070531
  Receipt Date: 20070518
  Transmission Date: 20071010
  Serious: Yes (Hospitalization, Other)
  Sender: FDA-Public Use
  Company Number: SP1200700313

PATIENT
  Age: 55 Year
  Sex: Male
  Weight: 115.2 kg

DRUGS (5)
  1. AMITIZA [Suspect]
     Indication: CONSTIPATION
     Dosage: SEE IMAGE
     Route: 048
     Dates: start: 20061001, end: 20060101
  2. AMITIZA [Suspect]
     Indication: CONSTIPATION
     Dosage: SEE IMAGE
     Route: 048
     Dates: start: 20070427, end: 20070501
  3. LISINOPRIL [Concomitant]
  4. DIURETICS [Concomitant]
  5. ATENOLOL [Concomitant]

REACTIONS (6)
  - DEHYDRATION [None]
  - DIARRHOEA [None]
  - DRUG INEFFECTIVE [None]
  - HEART RATE DECREASED [None]
  - SYNCOPE [None]
  - UNDERDOSE [None]
